FAERS Safety Report 8033536-5 (Version None)
Quarter: 2012Q1

REPORT INFORMATION
  Report Type: 
  Country: None (occurrence: None)
  Receive Date: 20120110
  Receipt Date: 20111229
  Transmission Date: 20120608
  Serious: Yes (Hospitalization)
  Sender: FDA-Public Use
  Company Number: PL-UCBSA-047747

PATIENT
  Age: 74 Year
  Sex: Female
  Weight: 81 kg

DRUGS (16)
  1. PREDNISONE [Concomitant]
     Route: 048
     Dates: start: 20111207
  2. ENOXAPARIN SODIUM [Concomitant]
     Indication: THROMBOSIS PROPHYLAXIS
     Route: 058
     Dates: start: 20111201
  3. CERTOLIZUMAB PEGOL [Suspect]
     Indication: RHEUMATOID ARTHRITIS
     Route: 058
     Dates: start: 20101201, end: 20111130
  4. TRAMADOL HCL [Concomitant]
     Route: 048
     Dates: start: 20111216
  5. OMEPRAZOLE [Concomitant]
     Indication: PROPHYLAXIS
     Route: 048
     Dates: start: 20090901
  6. TRAMADOL HYDROCHLORIDE [Concomitant]
     Indication: OSTEOARTHRITIS
     Route: 048
     Dates: start: 20110307
  7. TRAMADOL HYDROCHLORIDE [Concomitant]
     Indication: RHEUMATOID ARTHRITIS
     Route: 048
     Dates: start: 20110307
  8. TRAMADOL HCL [Concomitant]
     Indication: RHEUMATOID ARTHRITIS
     Dosage: 1 TAB AS NECESSARY
     Route: 048
     Dates: start: 20110307, end: 20111215
  9. TRAMADOL HCL [Concomitant]
     Indication: OSTEOARTHRITIS
     Dosage: 1 TAB AS NECESSARY
     Route: 048
     Dates: start: 20110307, end: 20111215
  10. TRAMADOL HCL [Concomitant]
     Indication: ANALGESIC THERAPY
     Dosage: 1 TAB AS NECESSARY
     Route: 048
     Dates: start: 20110307, end: 20111215
  11. TRAMADOL HCL [Concomitant]
     Route: 048
     Dates: start: 20111216
  12. TRAMADOL HCL [Concomitant]
     Route: 048
     Dates: start: 20111216
  13. ARAVA [Concomitant]
     Indication: RHEUMATOID ARTHRITIS
     Route: 048
     Dates: start: 20110307, end: 20111130
  14. PREDNISONE [Concomitant]
     Indication: RHEUMATOID ARTHRITIS
     Route: 048
     Dates: start: 20110107, end: 20111206
  15. CALPEROS [Concomitant]
     Indication: OSTEOPOROSIS PROPHYLAXIS
     Route: 048
     Dates: start: 20090901
  16. AULIN [Concomitant]
     Indication: RHEUMATOID ARTHRITIS
     Route: 048
     Dates: start: 20091015

REACTIONS (1)
  - JOINT PROSTHESIS USER [None]
